FAERS Safety Report 4742196-8 (Version None)
Quarter: 2005Q3

REPORT INFORMATION
  Report Type: 
  Country: None (occurrence: None)
  Receive Date: 20050811
  Receipt Date: 20050316
  Transmission Date: 20060218
  Serious: No
  Sender: FDA-Public Use
  Company Number: US-GLAXOSMITHKLINE-A0550058A

PATIENT
  Age: 36 Year
  Sex: Female

DRUGS (3)
  1. PAXIL CR [Suspect]
     Dosage: 25MG PER DAY
     Route: 048
     Dates: start: 20050101
  2. BLOOD PRESSURE MEDICATION [Concomitant]
  3. BIRTH CONTROL PILLS [Concomitant]

REACTIONS (1)
  - INSOMNIA [None]
